FAERS Safety Report 8058991-6 (Version None)
Quarter: 2012Q1

REPORT INFORMATION
  Report Type: 
  Country: None (occurrence: None)
  Receive Date: 20120120
  Receipt Date: 20101209
  Transmission Date: 20120608
  Serious: No
  Sender: FDA-Public Use
  Company Number: US-BAUSCH-2010BL006970

PATIENT
  Age: 64 Year
  Sex: Female

DRUGS (3)
  1. ALAWAY [Suspect]
     Indication: EYE PRURITUS
     Route: 047
     Dates: start: 20101209
  2. ALAWAY [Suspect]
     Indication: LACRIMATION INCREASED
     Route: 047
     Dates: start: 20101209
  3. VISINE EYE DROPS [Concomitant]
     Indication: DRY EYE
     Route: 047
     Dates: start: 20101205

REACTIONS (1)
  - DRUG INEFFECTIVE [None]
